FAERS Safety Report 10468257 (Version 1)
Quarter: 2014Q3

REPORT INFORMATION
  Report Type: Spontaneous
  Country: DE (occurrence: DE)
  Receive Date: 20140922
  Receipt Date: 20140922
  Transmission Date: 20150326
  Serious: Yes (Other)
  Sender: FDA-Public Use
  Company Number: DE-PFIZER INC-2014258152

PATIENT
  Age: 1 Day
  Sex: Male
  Weight: 3.8 kg

DRUGS (6)
  1. CELEBREX [Suspect]
     Active Substance: CELECOXIB
     Indication: PAIN
     Dosage: 0. - 40.5. GESTATIONAL WEEK
     Route: 064
     Dates: start: 20120923, end: 20130705
  2. FRISIUM [Concomitant]
     Active Substance: CLOBAZAM
     Indication: PAIN
     Dosage: UNK
     Route: 064
     Dates: start: 20120923, end: 20130430
  3. BUSCOPAN [Concomitant]
     Active Substance: BUTYLSCOPOLAMINE BROMIDE
     Indication: PAIN
     Dosage: UNK
     Route: 064
  4. VOLTAREN [Suspect]
     Active Substance: DICLOFENAC SODIUM
     Indication: PAIN
     Dosage: 0. - 40.5. GESTATIONAL WEEK
     Route: 064
     Dates: start: 20120923, end: 20130705
  5. TRAMAL [Concomitant]
     Active Substance: TRAMADOL
     Indication: PAIN
     Dosage: 0. - 40.5. GESTATIONAL WEEK
     Route: 064
     Dates: start: 20120923, end: 20130705
  6. OMEP [Concomitant]
     Active Substance: OMEPRAZOLE
     Indication: GASTRITIS PROPHYLAXIS
     Dosage: 0. - 40.5. GESTATIONAL WEEK
     Route: 064
     Dates: start: 20120923, end: 20130705

REACTIONS (5)
  - Maternal exposure during pregnancy [Unknown]
  - Persistent foetal circulation [Recovered/Resolved]
  - Ductus arteriosus premature closure [Unknown]
  - Atrial septal defect [Unknown]
  - Right ventricular hypertrophy [Recovering/Resolving]

NARRATIVE: CASE EVENT DATE: 20130705
